FAERS Safety Report 12319465 (Version 2)
Quarter: 2016Q3

REPORT INFORMATION
  Report Type: Report from Study
  Country: US (occurrence: US)
  Receive Date: 20160429
  Receipt Date: 20160729
  Transmission Date: 20161109
  Serious: Yes (Hospitalization)
  Sender: FDA-Public Use
  Company Number: US-SA-2016SA042043

PATIENT
  Age: 48 Year
  Sex: Female
  Weight: 59.8 kg

DRUGS (1)
  1. LEMTRADA [Suspect]
     Active Substance: ALEMTUZUMAB
     Indication: MULTIPLE SCLEROSIS
     Route: 041
     Dates: start: 20151109, end: 20151113

REACTIONS (71)
  - Ischaemic hepatitis [Unknown]
  - Atrial fibrillation [Unknown]
  - Acute respiratory distress syndrome [Unknown]
  - Pneumonia legionella [Recovered/Resolved]
  - Respiratory disorder [Unknown]
  - Tachypnoea [Unknown]
  - Hypoaesthesia [Unknown]
  - Sepsis [Not Recovered/Not Resolved]
  - Hypoxia [Unknown]
  - White blood cell count increased [Recovering/Resolving]
  - Hypertension [Unknown]
  - Platelet count increased [Unknown]
  - Diarrhoea [Unknown]
  - Anuria [Recovered/Resolved]
  - Haemorrhage [Unknown]
  - Cholecystitis acute [Not Recovered/Not Resolved]
  - Urine ketone body present [Unknown]
  - End stage renal disease [Recovered/Resolved]
  - Gallbladder disorder [Unknown]
  - Brain injury [Unknown]
  - Jaundice cholestatic [Unknown]
  - Impaired gastric emptying [Unknown]
  - Cough [Unknown]
  - Fatigue [Unknown]
  - Cognitive disorder [Unknown]
  - Constipation [Recovered/Resolved]
  - Pneumonia pseudomonal [Unknown]
  - Ulcer [Unknown]
  - Herpes zoster [Unknown]
  - Depression [Unknown]
  - Electrolyte imbalance [Recovered/Resolved]
  - Blood potassium decreased [Recovered/Resolved]
  - Disseminated intravascular coagulation [Recovered/Resolved]
  - Pleural effusion [Unknown]
  - Encephalopathy [Unknown]
  - Mental disorder [Recovering/Resolving]
  - Dyspnoea [Unknown]
  - Septic shock [Recovered/Resolved]
  - Blood pressure decreased [Recovered/Resolved]
  - Urine leukocyte esterase positive [Unknown]
  - Urinary casts [Unknown]
  - Crystalluria [Unknown]
  - Urine analysis abnormal [Unknown]
  - Dyslipidaemia [Unknown]
  - Blood creatinine increased [Recovered/Resolved]
  - Electrolyte imbalance [Unknown]
  - White blood cells urine positive [Unknown]
  - Anaemia [Unknown]
  - Anxiety [Unknown]
  - Asthenia [Not Recovered/Not Resolved]
  - Malnutrition [Unknown]
  - Neurogenic bladder [Unknown]
  - Metabolic acidosis [Unknown]
  - Multiple sclerosis [Not Recovered/Not Resolved]
  - Respiratory failure [Recovered/Resolved]
  - Pseudomonas infection [Unknown]
  - Lymphocyte count increased [Unknown]
  - Crystal urine present [Unknown]
  - Acute kidney injury [Recovered/Resolved]
  - Multiple organ dysfunction syndrome [Unknown]
  - Liver function test abnormal [Not Recovered/Not Resolved]
  - Urinary tract infection pseudomonal [Unknown]
  - Nausea [Recovered/Resolved]
  - Blood alkaline phosphatase increased [Unknown]
  - Urinary sediment present [Unknown]
  - Bacterial test [Unknown]
  - Vomiting [Recovered/Resolved]
  - Pyrexia [Recovered/Resolved]
  - Paraesthesia [Unknown]
  - Urine abnormality [Unknown]
  - Red blood cells urine positive [Unknown]

NARRATIVE: CASE EVENT DATE: 20151130
